FAERS Safety Report 10274747 (Version 2)
Quarter: 2015Q3

REPORT INFORMATION
  Report Type: Spontaneous
  Country: BR (occurrence: BR)
  Receive Date: 20140702
  Receipt Date: 20150909
  Transmission Date: 20151125
  Serious: Yes (Other)
  Sender: FDA-Public Use
  Company Number: BR-ABBVIE-14P-020-1255345-00

PATIENT
  Sex: Female
  Weight: 54 kg

DRUGS (5)
  1. DEPAKOTE ER [Suspect]
     Active Substance: DIVALPROEX SODIUM
     Route: 065
  2. DEPAKOTE ER [Suspect]
     Active Substance: DIVALPROEX SODIUM
     Dosage: 750 MG DAILY (ONE TABLET OF EACH 250 MG AND 500 MG ADMINISTERED IN THE AFTERNOON)
     Route: 065
     Dates: start: 201507
  3. DEPAKOTE ER [Suspect]
     Active Substance: DIVALPROEX SODIUM
     Indication: BIPOLAR DISORDER
     Route: 065
     Dates: end: 201406
  4. DEPAKOTE ER [Suspect]
     Active Substance: DIVALPROEX SODIUM
     Dosage: AT NIGHT (AT 10:00 P.M OR 10:30 P.M): DAILY DOSE; 750 MG
     Route: 065
     Dates: start: 201406
  5. SIBLIMA [Concomitant]
     Indication: CONTRACEPTION
     Dosage: AT NIGHT: DAILY DOSE: 1 TABLET
     Route: 048

REACTIONS (15)
  - Anxiety [Recovered/Resolved]
  - Anticonvulsant drug level decreased [Recovered/Resolved]
  - Mood swings [Recovered/Resolved]
  - Irritability [Recovered/Resolved]
  - Insomnia [Recovered/Resolved]
  - Aggression [Recovered/Resolved]
  - Bipolar disorder [Recovered/Resolved]
  - Mood altered [Recovered/Resolved]
  - Partner stress [Not Recovered/Not Resolved]
  - Bipolar disorder [Recovered/Resolved]
  - Agitation [Recovered/Resolved]
  - Weight decreased [Recovered/Resolved]
  - Insomnia [Recovered/Resolved]
  - Irritability [Recovered/Resolved]
  - Drug dose omission [Unknown]

NARRATIVE: CASE EVENT DATE: 2014
